FAERS Safety Report 11690216 (Version 2)
Quarter: 2015Q4

REPORT INFORMATION
  Report Type: Spontaneous
  Country: US (occurrence: US)
  Receive Date: 20151102
  Receipt Date: 20151104
  Transmission Date: 20160304
  Serious: Yes (Hospitalization, Other)
  Sender: FDA-Public Use
  Company Number: US-PFIZER INC-2015366669

PATIENT
  Age: 83 Year
  Sex: Female
  Weight: 70 kg

DRUGS (6)
  1. TRAZODONE [Concomitant]
     Active Substance: TRAZODONE HYDROCHLORIDE
     Indication: ANXIETY
  2. LYRICA [Suspect]
     Active Substance: PREGABALIN
     Indication: NEUROPATHY PERIPHERAL
     Dosage: 25 MG, 2X/DAY
  3. POTASSIUM [Concomitant]
     Active Substance: POTASSIUM
     Dosage: 10 MEQ/L, 2X/DAY
  4. WARFARIN [Suspect]
     Active Substance: WARFARIN
     Indication: ATRIAL FIBRILLATION
  5. OXYCODONE [Concomitant]
     Active Substance: OXYCODONE
     Indication: MIGRAINE
     Dosage: 40 MG, UNK
  6. LASIX [Concomitant]
     Active Substance: FUROSEMIDE
     Dosage: 40 MG, 2X/DAY

REACTIONS (31)
  - Muscular weakness [Unknown]
  - Insomnia [Unknown]
  - Somnolence [Unknown]
  - Activities of daily living impaired [Unknown]
  - Ascites [Unknown]
  - Anxiety [Unknown]
  - Movement disorder [Unknown]
  - Dyspnoea [Unknown]
  - Abasia [Unknown]
  - Dizziness [Unknown]
  - Hypertension [Unknown]
  - Condition aggravated [Unknown]
  - Hypersensitivity [Unknown]
  - Hearing impaired [Unknown]
  - Sensory loss [Unknown]
  - Product use issue [Unknown]
  - Cardiac failure congestive [Unknown]
  - Visual acuity reduced [Unknown]
  - Vision blurred [Unknown]
  - Lethargy [Unknown]
  - Platelet count decreased [Recovering/Resolving]
  - Renal failure [Unknown]
  - Malaise [Unknown]
  - Hypoaesthesia [Unknown]
  - Oedema peripheral [Unknown]
  - Weight increased [Unknown]
  - Haematoma [Unknown]
  - Chest discomfort [Unknown]
  - Pain in extremity [Unknown]
  - Gastrointestinal pain [Unknown]
  - Neuropathy peripheral [Unknown]
